FAERS Safety Report 4947408-3 (Version None)
Quarter: 2006Q1

REPORT INFORMATION
  Report Type: 
  Country: None (occurrence: None)
  Receive Date: 20060317
  Receipt Date: 20060301
  Transmission Date: 20060701
  Serious: Yes (Life-Threatening, Hospitalization, Disabling, Other)
  Sender: FDA-Public Use
  Company Number: US-MERCK-0603USA00328

PATIENT
  Age: 80 Year
  Sex: Female

DRUGS (13)
  1. INVANZ [Suspect]
     Indication: SEPSIS
     Route: 042
     Dates: start: 20060221, end: 20060224
  2. MICARDIS [Concomitant]
     Route: 065
  3. ASPIRIN [Concomitant]
     Route: 065
  4. LEVOTHROID [Concomitant]
     Route: 065
  5. DOPAMINE HYDROCHLORIDE [Concomitant]
     Route: 065
  6. ALBUTEROL [Concomitant]
     Route: 065
  7. INSULIN [Concomitant]
     Route: 065
  8. TYLENOL (CAPLET) [Concomitant]
     Route: 065
  9. AMINO ACIDS (UNSPECIFIED) AND CARBOHYDRATES (UNSPECIFIED) AND ELECTROL [Concomitant]
     Route: 065
  10. LASIX [Concomitant]
     Route: 065
  11. AVANDIA [Concomitant]
     Route: 065
  12. METFORMIN [Concomitant]
     Route: 065
  13. HYZAAR [Suspect]
     Route: 048
     Dates: start: 20060221, end: 20060221

REACTIONS (2)
  - STEVENS-JOHNSON SYNDROME [None]
  - TOXIC EPIDERMAL NECROLYSIS [None]
